FAERS Safety Report 25286152 (Version 1)
Quarter: 2025Q2

REPORT INFORMATION
  Report Type: Spontaneous
  Country: PL (occurrence: PL)
  Receive Date: 20250509
  Receipt Date: 20250509
  Transmission Date: 20250716
  Serious: Yes (Death)
  Sender: BEIGENE
  Company Number: PL-BEIGENE-BGN-2025-007262

PATIENT
  Age: 86 Year

DRUGS (1)
  1. BRUKINSA [Suspect]
     Active Substance: ZANUBRUTINIB
     Indication: Marginal zone lymphoma

REACTIONS (1)
  - Disease progression [Fatal]
